FAERS Safety Report 13098826 (Version 1)
Quarter: 2017Q1

REPORT INFORMATION
  Report Type: Spontaneous
  Country: IT (occurrence: IT)
  Receive Date: 20170109
  Receipt Date: 20170109
  Transmission Date: 20170428
  Serious: Yes (Death)
  Sender: FDA-Public Use
  Company Number: IT-SA-2017SA002905

PATIENT

DRUGS (15)
  1. ANTI-THYMOCYTE GLOBULIN (RABBIT) [Suspect]
     Active Substance: LAPINE T-LYMPHOCYTE IMMUNE GLOBULIN
     Indication: ALLOGENIC BONE MARROW TRANSPLANTATION THERAPY
     Route: 065
  2. CARBAMAZEPINE. [Concomitant]
     Active Substance: CARBAMAZEPINE
  3. CYCLOSPORIN [Concomitant]
     Active Substance: CYCLOSPORINE
  4. MEROPENEM. [Concomitant]
     Active Substance: MEROPENEM
  5. CAPTOPRIL. [Concomitant]
     Active Substance: CAPTOPRIL
  6. FUROSEMIDE. [Concomitant]
     Active Substance: FUROSEMIDE
  7. TRIMETHOPRIM/SULFAMETHOXAZOLE [Concomitant]
  8. DEFIBROTIDE [Concomitant]
     Active Substance: DEFIBROTIDE (BOVINE)
  9. ACYCLOVIR. [Concomitant]
     Active Substance: ACYCLOVIR
  10. VANCOMYCIN [Concomitant]
     Active Substance: VANCOMYCIN
  11. FLUDARABINE PHOSPHATE. [Suspect]
     Active Substance: FLUDARABINE PHOSPHATE
     Indication: ALLOGENIC BONE MARROW TRANSPLANTATION THERAPY
     Route: 065
  12. MORPHINE [Concomitant]
     Active Substance: MORPHINE
  13. INSULIN [Concomitant]
     Active Substance: INSULIN NOS
  14. VORICONAZOLE. [Concomitant]
     Active Substance: VORICONAZOLE
  15. DOBUTAMINE [Concomitant]
     Active Substance: DOBUTAMINE\DOBUTAMINE HYDROCHLORIDE

REACTIONS (1)
  - Cardiac failure [Fatal]
